FAERS Safety Report 20877621 (Version 3)
Quarter: 2022Q4

REPORT INFORMATION
  Report Type: Report from Study
  Country: FR (occurrence: FR)
  Receive Date: 20220526
  Receipt Date: 20221229
  Transmission Date: 20230113
  Serious: Yes (Other)
  Sender: FDA-Public Use
  Company Number: FR-ROCHE-3090815

PATIENT
  Age: 64 Year
  Sex: Female
  Weight: 64 kg

DRUGS (13)
  1. PACLITAXEL [Suspect]
     Active Substance: PACLITAXEL
     Dosage: UNK
     Route: 065
  2. EPIRUBICIN HYDROCHLORIDE [Suspect]
     Active Substance: EPIRUBICIN HYDROCHLORIDE
     Dosage: 400 MG/M2, EVERY 3 WEEKS
     Route: 042
     Dates: start: 20200819, end: 20201021
  3. SACITUZUMAB GOVITECAN [Suspect]
     Active Substance: SACITUZUMAB GOVITECAN
     Indication: Triple negative breast cancer
     Dosage: UNK (SCHEDULED DATES D1 AND D8)
     Route: 042
     Dates: start: 20211227, end: 20220103
  4. SACITUZUMAB GOVITECAN [Suspect]
     Active Substance: SACITUZUMAB GOVITECAN
     Dosage: RECEIVED 5 CYCLES
     Route: 042
     Dates: end: 20220207
  5. SACITUZUMAB GOVITECAN [Suspect]
     Active Substance: SACITUZUMAB GOVITECAN
     Dosage: UNK
     Route: 042
     Dates: start: 2022
  6. CYCLOPHOSPHAMIDE [Suspect]
     Active Substance: CYCLOPHOSPHAMIDE
     Dosage: UNK
     Route: 065
  7. ERIBULIN [Concomitant]
     Active Substance: ERIBULIN
     Indication: Neoadjuvant therapy
     Dosage: UNK
  8. ERIBULIN [Concomitant]
     Active Substance: ERIBULIN
     Indication: Chemotherapy
  9. PACLITAXEL [Concomitant]
     Active Substance: PACLITAXEL
     Indication: Neoadjuvant therapy
     Dosage: UNK
  10. PACLITAXEL [Concomitant]
     Active Substance: PACLITAXEL
     Indication: Chemotherapy
  11. VIDAZA [Concomitant]
     Active Substance: AZACITIDINE
     Dosage: UNK
  12. CARBOPLATIN [Concomitant]
     Active Substance: CARBOPLATIN
     Indication: Chemotherapy
     Dosage: UNK
  13. CARBOPLATIN [Concomitant]
     Active Substance: CARBOPLATIN
     Indication: Adjuvant therapy

REACTIONS (2)
  - Second primary malignancy [Not Recovered/Not Resolved]
  - Acute myeloid leukaemia [Not Recovered/Not Resolved]

NARRATIVE: CASE EVENT DATE: 20220204
